FAERS Safety Report 11889718 (Version 3)
Quarter: 2016Q1

REPORT INFORMATION
  Report Type: Spontaneous
  Country: US (occurrence: US)
  Receive Date: 20160105
  Receipt Date: 20160205
  Transmission Date: 20160526
  Serious: No
  Sender: FDA-Public Use
  Company Number: US-ROXANE LABORATORIES, INC.-2016-RO-00003RO

PATIENT
  Age: 25 Year
  Sex: Male
  Weight: 72.57 kg

DRUGS (2)
  1. METHADONE HCL ORAL CONCENTRATE USP, 10 MG/ML (CHERRY) [Suspect]
     Active Substance: METHADONE HYDROCHLORIDE
     Indication: PRODUCT USED FOR UNKNOWN INDICATION
     Dosage: 130 MG
     Route: 048
     Dates: start: 20140926
  2. METHADONE HCL ORAL CONCENTRATE USP, 10 MG/ML (CHERRY) [Suspect]
     Active Substance: METHADONE HYDROCHLORIDE
     Dosage: 140 MG
     Route: 048
     Dates: start: 201510

REACTIONS (4)
  - Drug ineffective [Unknown]
  - Irritability [Not Recovered/Not Resolved]
  - Hyperhidrosis [Not Recovered/Not Resolved]
  - Product quality issue [Unknown]

NARRATIVE: CASE EVENT DATE: 201509
